FAERS Safety Report 9518618 (Version 2)
Quarter: 2013Q3

REPORT INFORMATION
  Report Type: Report from Study
  Country: DE (occurrence: DE)
  Receive Date: 20130912
  Receipt Date: 20130917
  Transmission Date: 20140515
  Serious: Yes (Hospitalization)
  Sender: FDA-Public Use
  Company Number: PHHY2013DE100511

PATIENT
  Sex: Female

DRUGS (4)
  1. GILENYA [Suspect]
     Indication: MULTIPLE SCLEROSIS
     Dosage: 0.5 MG, QD
     Route: 048
     Dates: start: 20130729
  2. PROPRANOLOL [Concomitant]
     Dates: start: 201307
  3. LISKANTIN [Concomitant]
  4. GABAPENTIN [Concomitant]

REACTIONS (4)
  - Cardiovascular disorder [Recovering/Resolving]
  - Ataxia [Recovering/Resolving]
  - Fatigue [Recovering/Resolving]
  - Chest discomfort [Recovered/Resolved]
